FAERS Safety Report 14978821 (Version 1)
Quarter: 2018Q2

REPORT INFORMATION
  Report Type: Spontaneous
  Country: CH (occurrence: CH)
  Receive Date: 20180606
  Receipt Date: 20180606
  Transmission Date: 20180711
  Serious: Yes (Other)
  Sender: FDA-Public Use
  Company Number: CH-TEVA-2018-CH-902652

PATIENT
  Age: 68 Year
  Sex: Male

DRUGS (3)
  1. AMLODIPIN-VALSARTAN-HCT-MEPHA [Suspect]
     Active Substance: AMLODIPINE\HYDROCHLOROTHIAZIDE\VALSARTAN
     Dosage: AMLODIPINE/VALSARTAN/HYDROCHLOROTHIAZIDE 5/160/25 MG
     Dates: start: 201805
  2. JANUVIA [Concomitant]
     Active Substance: SITAGLIPTIN PHOSPHATE
  3. JARDIANCE [Concomitant]
     Active Substance: EMPAGLIFLOZIN

REACTIONS (2)
  - Product substitution issue [Unknown]
  - Swollen tongue [Unknown]
